FAERS Safety Report 6348808-X (Version None)
Quarter: 2009Q3

REPORT INFORMATION
  Report Type: 
  Country: None (occurrence: None)
  Receive Date: 20090911
  Receipt Date: 20090831
  Transmission Date: 20100115
  Serious: Yes (Death)
  Sender: FDA-Public Use
  Company Number: MX-BRISTOL-MYERS SQUIBB COMPANY-13977830

PATIENT
  Age: 57 Year
  Sex: Male

DRUGS (3)
  1. ABATACEPT [Suspect]
     Indication: COLITIS ULCERATIVE
     Dates: start: 20070912, end: 20071011
  2. MESALAZINE [Concomitant]
     Dates: start: 20070613, end: 20071028
  3. BUDESONIDE [Concomitant]
     Dates: start: 20070613, end: 20071028

REACTIONS (23)
  - ANISOCYTOSIS [None]
  - BLOOD ALBUMIN DECREASED [None]
  - BLOOD CALCIUM DECREASED [None]
  - BLOOD IMMUNOGLOBULIN G DECREASED [None]
  - BLOOD PHOSPHORUS DECREASED [None]
  - BLOOD POTASSIUM DECREASED [None]
  - BRONCHOPNEUMONIA [None]
  - COLITIS ULCERATIVE [None]
  - DISEASE PROGRESSION [None]
  - GAMMA-GLUTAMYLTRANSFERASE INCREASED [None]
  - HAEMATOCRIT DECREASED [None]
  - HAEMOGLOBIN DECREASED [None]
  - LYMPHOCYTE COUNT DECREASED [None]
  - MONOCYTE COUNT DECREASED [None]
  - NEUTROPHIL COUNT DECREASED [None]
  - PLATELET COUNT DECREASED [None]
  - PNEUMONIA [None]
  - PROTEIN TOTAL DECREASED [None]
  - RED BLOOD CELL BURR CELLS PRESENT [None]
  - RED BLOOD CELL COUNT DECREASED [None]
  - RESPIRATORY FAILURE [None]
  - SEPTIC SHOCK [None]
  - WHITE BLOOD CELL COUNT DECREASED [None]
